FAERS Safety Report 20916262 (Version 2)
Quarter: 2024Q2

REPORT INFORMATION
  Report Type: Spontaneous
  Country: US (occurrence: US)
  Receive Date: 20220604
  Receipt Date: 20240618
  Transmission Date: 20240716
  Serious: No
  Sender: FDA-Public Use
  Company Number: US-SA-SAC20220601001535

PATIENT
  Age: 14 Year
  Sex: Male

DRUGS (16)
  1. DUPIXENT [Suspect]
     Active Substance: DUPILUMAB
     Indication: Dermatitis atopic
     Dosage: 300 MG, QOW
     Route: 058
     Dates: start: 20211005
  2. ALBUTEROL SULFATE [Concomitant]
     Active Substance: ALBUTEROL SULFATE
  3. DIPHENHYDRAMINE HYDROCHLORIDE\GUAIFENESIN [Concomitant]
     Active Substance: DIPHENHYDRAMINE HYDROCHLORIDE\GUAIFENESIN
     Dosage: 25MG
  4. PREDNISONE [Concomitant]
     Active Substance: PREDNISONE
  5. VENTOLIN HFA [Concomitant]
     Active Substance: ALBUTEROL SULFATE
  6. HYDROXYZINE [Concomitant]
     Active Substance: HYDROXYZINE HYDROCHLORIDE
  7. TRIAMCINOLON S [Concomitant]
  8. EPINEPHRINE [Concomitant]
     Active Substance: EPINEPHRINE
  9. ERYTHROMYCIN [Concomitant]
     Active Substance: ERYTHROMYCIN
  10. IBUPROFEN [Concomitant]
     Active Substance: IBUPROFEN
  11. MOMETASONE [Concomitant]
     Active Substance: MOMETASONE
  12. TACROLIMUS [Concomitant]
     Active Substance: TACROLIMUS
  13. ACETAMINOPHEN [Concomitant]
     Active Substance: ACETAMINOPHEN
  14. FLUOCINOLONE ACETONIDE [Concomitant]
     Active Substance: FLUOCINOLONE ACETONIDE
  15. METHYLPREDNISOLONE [Concomitant]
     Active Substance: METHYLPREDNISOLONE
  16. TRIAMCINOLONE [Concomitant]
     Active Substance: TRIAMCINOLONE

REACTIONS (2)
  - Sleep disorder due to a general medical condition [Unknown]
  - Pruritus [Unknown]

NARRATIVE: CASE EVENT DATE: 20220401
